FAERS Safety Report 10012367 (Version 2)
Quarter: 2014Q2

REPORT INFORMATION
  Report Type: Spontaneous
  Country: US (occurrence: US)
  Receive Date: 20140314
  Receipt Date: 20140516
  Transmission Date: 20141212
  Serious: Yes (Other)
  Sender: FDA-Public Use
  Company Number: US-PERRIGO-14US002307

PATIENT
  Age: 42 Year
  Sex: Female
  Weight: 99.77 kg

DRUGS (4)
  1. DAYTIME PE ORIG LIQ 656 [Suspect]
     Indication: COUGH
     Dosage: 30 ML, QD
     Route: 048
     Dates: start: 20140301, end: 20140303
  2. DAYTIME PE ORIG LIQ 656 [Suspect]
     Indication: INFLUENZA
  3. TUSSIN DM LIQ 359 [Suspect]
     Indication: COUGH
     Dosage: 10 ML BEDTIME
     Route: 048
     Dates: start: 20140301, end: 20140302
  4. TUSSIN DM LIQ 359 [Suspect]
     Indication: INFLUENZA

REACTIONS (6)
  - Hypersensitivity [Recovered/Resolved]
  - Dyspnoea [Recovered/Resolved]
  - Pharyngeal oedema [Recovered/Resolved]
  - Dysphagia [Recovered/Resolved]
  - Insomnia [Recovered/Resolved]
  - Off label use [Unknown]
